FAERS Safety Report 24922383 (Version 1)
Quarter: 2025Q1

REPORT INFORMATION
  Report Type: Spontaneous
  Country: US (occurrence: US)
  Receive Date: 20250204
  Receipt Date: 20250204
  Transmission Date: 20250408
  Serious: No
  Sender: MERCK
  Company Number: US-009507513-2502USA000817

PATIENT
  Age: 61 Year
  Sex: Female

DRUGS (1)
  1. EMEND [Suspect]
     Active Substance: APREPITANT

REACTIONS (1)
  - Drug hypersensitivity [Unknown]
